FAERS Safety Report 12547920 (Version 1)
Quarter: 2016Q3

REPORT INFORMATION
  Report Type: Spontaneous
  Country: US (occurrence: None)
  Receive Date: 20160711
  Receipt Date: 20160711
  Transmission Date: 20161109
  Serious: No
  Sender: FDA-Public Use
  Company Number: None

PATIENT
  Age: 23 Year
  Sex: Female
  Weight: 53.52 kg

DRUGS (2)
  1. IBUPROFEN. [Concomitant]
     Active Substance: IBUPROFEN
  2. MONISTAT 7 [Suspect]
     Active Substance: MICONAZOLE NITRATE
     Indication: FUNGAL INFECTION
     Dates: start: 20160707, end: 20160707

REACTIONS (5)
  - Pruritus [None]
  - Dyskinesia [None]
  - Insomnia [None]
  - Scratch [None]
  - Burning sensation [None]

NARRATIVE: CASE EVENT DATE: 20160707
